FAERS Safety Report 23189436 (Version 1)
Quarter: 2023Q4

REPORT INFORMATION
  Report Type: Spontaneous
  Country: FR (occurrence: FR)
  Receive Date: 20231116
  Receipt Date: 20231116
  Transmission Date: 20240110
  Serious: Yes (Other)
  Sender: FDA-Public Use
  Company Number: None

PATIENT
  Age: 81 Year
  Sex: Male
  Weight: 75 kg

DRUGS (2)
  1. IMBRUVICA [Suspect]
     Active Substance: IBRUTINIB
     Indication: Chronic lymphocytic leukaemia
     Dosage: INCONNUE
     Route: 048
     Dates: start: 2022, end: 20231026
  2. AMOXICILLIN [Suspect]
     Active Substance: AMOXICILLIN
     Indication: Tooth infection
     Route: 048
     Dates: start: 20231025, end: 20231026

REACTIONS (1)
  - Ophthalmic herpes zoster [Recovering/Resolving]

NARRATIVE: CASE EVENT DATE: 20231025
